FAERS Safety Report 7125192-5 (Version None)
Quarter: 2010Q4

REPORT INFORMATION
  Report Type: 
  Country: None (occurrence: None)
  Receive Date: 20101129
  Receipt Date: 20101117
  Transmission Date: 20110411
  Serious: Yes (Other)
  Sender: FDA-Public Use
  Company Number: PHHY2010BR47016

PATIENT
  Sex: Female

DRUGS (9)
  1. EXELON [Suspect]
     Indication: DEMENTIA ALZHEIMER'S TYPE
     Dosage: 9MG/5CM2, 1 PATCH PER DAY
     Route: 062
  2. EXELON [Suspect]
     Dosage: 18MG/10CM2, 1 PATCH PER DAY
     Route: 062
  3. RIVOTRIL [Concomitant]
     Indication: INSOMNIA
     Dosage: 5 GTT, QD
     Route: 048
  4. MANTIDAN [Concomitant]
     Dosage: 0.5 DF, BID
  5. SEROQUEL [Concomitant]
     Indication: DEMENTIA ALZHEIMER'S TYPE
     Dosage: 3 DF, QD
     Route: 048
  6. DEPAKOTE [Concomitant]
     Dosage: 1 DF, QD
     Route: 048
  7. AMITRIPTYLINE HCL [Concomitant]
     Indication: HEADACHE
     Dosage: UNK
     Route: 048
  8. VENOCUR TRIPLEX [Concomitant]
     Indication: VARICOSE VEIN
     Dosage: UNK
  9. METFORMIN [Concomitant]
     Indication: DIABETES MELLITUS
     Dosage: 2 DF, QD
     Route: 048

REACTIONS (18)
  - ACTIVITIES OF DAILY LIVING IMPAIRED [None]
  - AGGRESSION [None]
  - AGITATION [None]
  - AMNESIA [None]
  - APPLICATION SITE ERYTHEMA [None]
  - APPLICATION SITE HYPERSENSITIVITY [None]
  - APPLICATION SITE PRURITUS [None]
  - COGNITIVE DISORDER [None]
  - CONDITION AGGRAVATED [None]
  - DISORIENTATION [None]
  - FALL [None]
  - HAEMATOMA [None]
  - HALLUCINATION [None]
  - INSOMNIA [None]
  - MEMORY IMPAIRMENT [None]
  - REPETITIVE SPEECH [None]
  - SKIN PLAQUE [None]
  - VERBAL ABUSE [None]
